FAERS Safety Report 8082645-3 (Version None)
Quarter: 2012Q1

REPORT INFORMATION
  Report Type: 
  Country: None (occurrence: None)
  Receive Date: 20120127
  Receipt Date: 20110218
  Transmission Date: 20120608
  Serious: No
  Sender: FDA-Public Use
  Company Number: US-ABBOTT-11P-163-0707481-00

PATIENT
  Sex: Female
  Weight: 77.18 kg

DRUGS (3)
  1. HUMIRA [Suspect]
     Indication: CROHN'S DISEASE
     Dosage: GOING TO RESTART IN 1 WEEK PER MD.
     Route: 058
     Dates: end: 20101201
  2. COLESTERAMINE [Concomitant]
     Indication: PRODUCT USED FOR UNKNOWN INDICATION
     Dates: start: 20110218
  3. IRON [Concomitant]
     Indication: MINERAL SUPPLEMENTATION
     Dates: start: 20110217

REACTIONS (6)
  - COUGH [None]
  - BACTERIAL INFECTION [None]
  - UPPER-AIRWAY COUGH SYNDROME [None]
  - THROAT IRRITATION [None]
  - SPUTUM DISCOLOURED [None]
  - VIRAL INFECTION [None]
